FAERS Safety Report 22153937 (Version 6)
Quarter: 2023Q4

REPORT INFORMATION
  Report Type: Report from Study
  Country: US (occurrence: US)
  Receive Date: 20230330
  Receipt Date: 20231102
  Transmission Date: 20240110
  Serious: Yes (Hospitalization)
  Sender: FDA-Public Use
  Company Number: US-BAUSCH-BL-2023-001113

PATIENT
  Age: 59 Year
  Sex: Female

DRUGS (3)
  1. XIFAXAN [Suspect]
     Active Substance: RIFAXIMIN
     Indication: Hepatic encephalopathy
     Dosage: 31 MONTHS
     Route: 048
     Dates: start: 20210505
  2. LACTULOSE [Concomitant]
     Active Substance: LACTULOSE
     Indication: Product used for unknown indication
     Route: 065
  3. LACTULOSE [Concomitant]
     Active Substance: LACTULOSE
     Dosage: 30ML TID

REACTIONS (8)
  - Ammonia increased [Unknown]
  - Loss of consciousness [Unknown]
  - Dialysis [Unknown]
  - Lethargy [Unknown]
  - Hepatic encephalopathy [Unknown]
  - Condition aggravated [Unknown]
  - Hepatocellular carcinoma [Unknown]
  - Portal shunt procedure [Unknown]

NARRATIVE: CASE EVENT DATE: 20221226
